FAERS Safety Report 9295262 (Version 4)
Quarter: 2014Q3

REPORT INFORMATION
  Report Type: Spontaneous
  Country: US (occurrence: US)
  Receive Date: 20130517
  Receipt Date: 20140703
  Transmission Date: 20150326
  Serious: Yes (Other)
  Sender: FDA-Public Use
  Company Number: US-BAYER-2013-060022

PATIENT
  Age: 26 Year
  Sex: Female
  Weight: 90.7 kg

DRUGS (1)
  1. MIRENA [Suspect]
     Active Substance: LEVONORGESTREL
     Indication: CONTRACEPTION
     Dosage: 20 MCG/24HR, CONT
     Route: 015
     Dates: start: 201203

REACTIONS (6)
  - Uterine infection [None]
  - Stress [Not Recovered/Not Resolved]
  - Device dislocation [None]
  - Drug ineffective [None]
  - Pregnancy with contraceptive device [Recovered/Resolved]
  - Abdominal pain upper [None]

NARRATIVE: CASE EVENT DATE: 201211
